FAERS Safety Report 7609169-9 (Version None)
Quarter: 2011Q3

REPORT INFORMATION
  Report Type: 
  Country: None (occurrence: None)
  Receive Date: 20110714
  Receipt Date: 20110706
  Transmission Date: 20111222
  Serious: Yes (Other)
  Sender: FDA-Public Use
  Company Number: US-PFIZER INC-2011008934

PATIENT
  Sex: Female

DRUGS (5)
  1. GLIPIZIDE [Suspect]
     Indication: DIABETES MELLITUS
     Dosage: 2.5 MG,
     Dates: start: 20100901, end: 20100901
  2. TOPROL-XL [Concomitant]
  3. METFORMIN HCL [Suspect]
     Dosage: UNK
  4. ZESTRIL [Concomitant]
  5. ZETIA [Concomitant]

REACTIONS (9)
  - SWOLLEN TONGUE [None]
  - BURNING SENSATION [None]
  - ORAL PAIN [None]
  - LIP DRY [None]
  - TONGUE DRY [None]
  - GLOSSODYNIA [None]
  - PARAESTHESIA ORAL [None]
  - CHEILITIS [None]
  - LIP SWELLING [None]
